FAERS Safety Report 4645009-8 (Version None)
Quarter: 2005Q2

REPORT INFORMATION
  Report Type: 
  Country: None (occurrence: None)
  Receive Date: 20050426
  Receipt Date: 20050413
  Transmission Date: 20051028
  Serious: Yes (Other)
  Sender: FDA-Public Use
  Company Number: GBWYE584813APR05

PATIENT
  Age: 46 Year
  Sex: Female
  Weight: 60.2 kg

DRUGS (3)
  1. ENBREL [Suspect]
     Indication: RHEUMATOID ARTHRITIS
     Dosage: 25 MG, FREQUENCY UNKNOWN
     Route: 058
     Dates: start: 20040330
  2. VOLTAROL [Concomitant]
     Dosage: 50-100 MG, FREQUENCY UNKNOWN
     Route: 048
  3. METHOTREXATE [Concomitant]

REACTIONS (1)
  - PLEURISY [None]
